FAERS Safety Report 15838319 (Version 2)
Quarter: 2020Q3

REPORT INFORMATION
  Report Type: Spontaneous
  Country: GB (occurrence: GB)
  Receive Date: 20190117
  Receipt Date: 20200910
  Transmission Date: 20201102
  Serious: Yes (Disabling)
  Sender: FDA-Public Use
  Company Number: GB-NOVOPROD-641856

PATIENT
  Age: 38 Year
  Sex: Male
  Weight: 100 kg

DRUGS (1)
  1. NORDITROPIN [Suspect]
     Active Substance: SOMATROPIN
     Indication: MUSCLE BUILDING THERAPY
     Dosage: 8 IU, QD
     Route: 051
     Dates: start: 20180101, end: 20180308

REACTIONS (11)
  - Fatigue [Unknown]
  - Cough [Recovered/Resolved]
  - Product contamination microbial [Unknown]
  - Pyrexia [Recovered/Resolved]
  - Oropharyngeal pain [Recovered/Resolved]
  - Muscle twitching [Unknown]
  - Muscle spasms [Unknown]
  - Muscular weakness [Unknown]
  - Nervous system disorder [Not Recovered/Not Resolved]
  - Malaise [Recovered/Resolved]
  - Product use in unapproved indication [Unknown]

NARRATIVE: CASE EVENT DATE: 20180108
